FAERS Safety Report 9768637 (Version 2)
Quarter: 2013Q4

REPORT INFORMATION
  Report Type: Spontaneous
  Country: US (occurrence: US)
  Receive Date: 20131218
  Receipt Date: 20131218
  Transmission Date: 20140711
  Serious: Yes (Other)
  Sender: FDA-Public Use
  Company Number: US-BEH-2013038655

PATIENT
  Age: 27 Year
  Sex: Male

DRUGS (2)
  1. IVIG [Suspect]
     Indication: ACUTE DISSEMINATED ENCEPHALOMYELITIS
  2. IVIG [Suspect]
     Indication: ACUTE DISSEMINATED ENCEPHALOMYELITIS

REACTIONS (2)
  - Drug ineffective [Unknown]
  - Drug ineffective for unapproved indication [Unknown]
